FAERS Safety Report 9692521 (Version 2)
Quarter: 2013Q4

REPORT INFORMATION
  Report Type: Report from Study
  Country: US (occurrence: US)
  Receive Date: 20131118
  Receipt Date: 20131118
  Transmission Date: 20140711
  Serious: Yes (Other)
  Sender: FDA-Public Use
  Company Number: US-BAYER-2013-101756

PATIENT
  Age: 58 Year
  Sex: Male

DRUGS (5)
  1. STIVARGA [Suspect]
     Indication: RECTAL CANCER
     Dosage: 80MG/160MG 14 DAYS/ 7 DAYS
     Route: 048
     Dates: start: 20130730
  2. STIVARGA [Suspect]
     Indication: RECTAL CANCER
     Dosage: 160 MG, QD
     Route: 048
     Dates: start: 2013
  3. STIVARGA [Suspect]
     Indication: RECTAL CANCER
     Dosage: 80 MG DAILY
     Route: 048
  4. STIVARGA [Suspect]
     Indication: RECTAL CANCER
     Dosage: 80 MG DAILY (21 DAYS OF 28)
     Route: 048
     Dates: end: 20131105
  5. STIVARGA [Suspect]
     Indication: RECTAL CANCER
     Dosage: UNK
     Dates: start: 20131108

REACTIONS (8)
  - Diarrhoea [None]
  - Weight decreased [None]
  - Hypoaesthesia [None]
  - Fatigue [None]
  - Decreased appetite [None]
  - Dry skin [None]
  - Skin wound [None]
  - Insomnia [None]
